FAERS Safety Report 10775352 (Version 4)
Quarter: 2015Q2

REPORT INFORMATION
  Report Type: Spontaneous
  Country: DE (occurrence: DE)
  Receive Date: 20150209
  Receipt Date: 20150406
  Transmission Date: 20150821
  Serious: Yes (Death, Hospitalization, Other)
  Sender: FDA-Public Use
  Company Number: DE-TEVA-539524ISR

PATIENT
  Age: 13 Year
  Sex: Male
  Weight: 50 kg

DRUGS (9)
  1. VINCRISTIN [Concomitant]
     Active Substance: VINCRISTINE
  2. DEXAMETHASONE. [Concomitant]
     Active Substance: DEXAMETHASONE
  3. 6-MERCAPTOPURINE [Concomitant]
     Active Substance: MERCAPTOPURINE
  4. PEGASPARGASE [Concomitant]
     Active Substance: PEGASPARGASE
  5. DOXORUBICIN [Suspect]
     Active Substance: DOXORUBICIN
  6. DAUNORUBICIN [Concomitant]
     Active Substance: DAUNORUBICIN
  7. METHOTREXATE [Suspect]
     Active Substance: METHOTREXATE
  8. PREDNISOLONE. [Concomitant]
     Active Substance: PREDNISOLONE
  9. FOLINIC ACID [Concomitant]
     Active Substance: LEUCOVORIN

REACTIONS (6)
  - Multi-organ failure [Fatal]
  - Sepsis [Unknown]
  - Cerebral haemorrhage [Fatal]
  - Herpes simplex [Unknown]
  - Mucosal inflammation [Recovered/Resolved]
  - Neutropenia [Unknown]

NARRATIVE: CASE EVENT DATE: 201108
